FAERS Safety Report 13179499 (Version 2)
Quarter: 2017Q1

REPORT INFORMATION
  Report Type: Spontaneous
  Country: ZA (occurrence: ZA)
  Receive Date: 20170202
  Receipt Date: 20170203
  Transmission Date: 20170428
  Serious: Yes (Death, Hospitalization)
  Sender: FDA-Public Use
  Company Number: ZA-PFIZER INC-2017039624

PATIENT
  Sex: Male

DRUGS (2)
  1. ERAXIS [Suspect]
     Active Substance: ANIDULAFUNGIN
     Dosage: 100 MG, DAILY
  2. ERAXIS [Suspect]
     Active Substance: ANIDULAFUNGIN
     Indication: PNEUMONIA
     Dosage: 200MG LOAD / 100MG DAILY
     Dates: start: 20170115

REACTIONS (3)
  - Pneumonia [Fatal]
  - Drug ineffective [Fatal]
  - Multiple organ dysfunction syndrome [Fatal]
